FAERS Safety Report 19413715 (Version 2)
Quarter: 2021Q2

REPORT INFORMATION
  Report Type: Spontaneous
  Country: US (occurrence: US)
  Receive Date: 20210614
  Receipt Date: 20210616
  Transmission Date: 20210717
  Serious: Yes (Other)
  Sender: FDA-Public Use
  Company Number: US-SA-2021SA186191

PATIENT
  Age: 72 Year
  Sex: Male

DRUGS (2)
  1. HUMALOG [Concomitant]
     Active Substance: INSULIN LISPRO
     Indication: BLOOD GLUCOSE INCREASED
     Dosage: 12 IU
     Route: 065
  2. LANTUS [Suspect]
     Active Substance: INSULIN GLARGINE
     Indication: TYPE 2 DIABETES MELLITUS
     Dosage: ONCE A NIGHT
     Route: 065
     Dates: start: 20210529

REACTIONS (5)
  - Diabetes mellitus inadequate control [Recovered/Resolved]
  - Cold sweat [Unknown]
  - Paraesthesia [Recovered/Resolved]
  - Rash [Recovering/Resolving]
  - Product quality issue [Recovered/Resolved]

NARRATIVE: CASE EVENT DATE: 20210529
